FAERS Safety Report 9172799 (Version 1)
Quarter: 2012Q4

REPORT INFORMATION
  Report Type: 
  Country: BR (occurrence: BR)
  Receive Date: 20120911
  Receipt Date: 20120911
  Transmission Date: 20130627
  Serious: Yes (Other)
  Sender: FDA-Public Use
  Company Number: PHHY2012BR077951

PATIENT
  Age: 58 Year
  Sex: Female

DRUGS (2)
  1. FORASEQ [Suspect]
     Indication: ASTHMA
     Dosage: UNK UKN, BID (mornign and night)
  2. FORASEQ [Suspect]
     Dosage: UNK UKN, QD

REACTIONS (6)
  - Bronchial hyperreactivity [Unknown]
  - Allergic respiratory symptom [Unknown]
  - Influenza [Unknown]
  - Sinusitis [Unknown]
  - Respiratory tract infection [Unknown]
  - Asthma [Unknown]
